FAERS Safety Report 12587414 (Version 2)
Quarter: 2016Q3

REPORT INFORMATION
  Report Type: Spontaneous
  Country: MY (occurrence: MY)
  Receive Date: 20160725
  Receipt Date: 20160725
  Transmission Date: 20161109
  Serious: Yes (Other)
  Sender: FDA-Public Use
  Company Number: MY-ACTAVIS-2016-16102

PATIENT
  Age: 50 Year
  Sex: Male

DRUGS (5)
  1. PREDNISOLONE (UNKNOWN) [Suspect]
     Active Substance: PREDNISOLONE
     Indication: ENTEROPATHY-ASSOCIATED T-CELL LYMPHOMA
     Dosage: 2 CYCLES
     Route: 065
  2. ONCOVIN [Suspect]
     Active Substance: VINCRISTINE SULFATE
     Indication: ENTEROPATHY-ASSOCIATED T-CELL LYMPHOMA
     Dosage: 2 CYCLES
     Route: 065
  3. CYCLOPHOSPHAMIDE. [Suspect]
     Active Substance: CYCLOPHOSPHAMIDE
     Indication: ENTEROPATHY-ASSOCIATED T-CELL LYMPHOMA
     Dosage: 2 CYCLES
     Route: 065
  4. PREDNISOLONE (UNKNOWN) [Suspect]
     Active Substance: PREDNISOLONE
     Indication: ANTIINFLAMMATORY THERAPY
  5. DOXORUBICIN (UNKNOWN) [Suspect]
     Active Substance: DOXORUBICIN
     Indication: ENTEROPATHY-ASSOCIATED T-CELL LYMPHOMA
     Dosage: 2 CYCLES
     Route: 065

REACTIONS (1)
  - Febrile neutropenia [Unknown]
